FAERS Safety Report 9302432 (Version 1)
Quarter: 2013Q2

REPORT INFORMATION
  Report Type: Spontaneous
  Country: US (occurrence: US)
  Receive Date: 20130522
  Receipt Date: 20130522
  Transmission Date: 20140414
  Serious: No
  Sender: FDA-Public Use
  Company Number: US-BIOGENIDEC-2013BI044881

PATIENT
  Age: 22 Year
  Sex: Male

DRUGS (1)
  1. AVONEX [Suspect]
     Indication: MULTIPLE SCLEROSIS
     Route: 030
     Dates: start: 20120215

REACTIONS (7)
  - Seasonal allergy [Unknown]
  - Bronchitis [Unknown]
  - Multiple allergies [Unknown]
  - Drug dose omission [Unknown]
  - Off label use [Unknown]
  - Asthenia [Unknown]
  - Feeling abnormal [Unknown]
